FAERS Safety Report 6657745-2 (Version None)
Quarter: 2010Q1

REPORT INFORMATION
  Report Type: 
  Country: None (occurrence: None)
  Receive Date: 20100330
  Receipt Date: 20090326
  Transmission Date: 20100710
  Serious: Yes (Death)
  Sender: FDA-Public Use
  Company Number: US-TYCO HEALTHCARE/MALLINCKRODT-T200900755

PATIENT
  Age: 34 Year
  Sex: Female

DRUGS (3)
  1. METHADOSE [Suspect]
  2. XANAX [Concomitant]
  3. TYLOX                              /00446701/ [Concomitant]

REACTIONS (1)
  - DEATH [None]
